FAERS Safety Report 4934957-7 (Version None)
Quarter: 2006Q1

REPORT INFORMATION
  Report Type: 
  Country: None (occurrence: None)
  Receive Date: 20060303
  Receipt Date: 20060303
  Transmission Date: 20060701
  Serious: Yes (Hospitalization)
  Sender: FDA-Public Use
  Company Number: None

PATIENT
  Age: 54 Year
  Sex: Female
  Weight: 119.296 kg

DRUGS (15)
  1. LEVAQUIN [Suspect]
     Indication: STAPHYLOCOCCAL INFECTION
     Dosage: 500MG  QD  PO
     Route: 048
     Dates: start: 20060217, end: 20060227
  2. BETASERON [Concomitant]
  3. GABAPENTIN [Concomitant]
  4. TRAZADONE [Concomitant]
  5. IRBESARTIN [Concomitant]
  6. CLONIDINE [Concomitant]
  7. CITALOPRAM HYDROBROMICE [Concomitant]
  8. LISINOPRIL [Concomitant]
  9. HYDROCHLORIZIDE [Concomitant]
  10. BACLOFEN [Concomitant]
  11. PROVIGIL [Concomitant]
  12. ARICEPT [Concomitant]
  13. OMEPRAZOLE [Concomitant]
  14. ZOCOR [Concomitant]
  15. FOSAMAX [Concomitant]

REACTIONS (6)
  - CHEST PAIN [None]
  - DRUG INTERACTION [None]
  - DYSPEPSIA [None]
  - LABELLED DRUG-DRUG INTERACTION MEDICATION ERROR [None]
  - PAIN IN EXTREMITY [None]
  - WRONG DRUG ADMINISTERED [None]
